FAERS Safety Report 7269668-9 (Version None)
Quarter: 2010Q4

REPORT INFORMATION
  Report Type: 
  Country: None (occurrence: None)
  Receive Date: 20101130
  Receipt Date: 20100512
  Transmission Date: 20110411
  Serious: Yes (Other)
  Sender: FDA-Public Use
  Company Number: 2010SP026677

PATIENT
  Age: 29 Year
  Sex: Female
  Weight: 99.7913 kg

DRUGS (4)
  1. NUVARING [Suspect]
     Indication: CONTRACEPTION
     Dates: start: 20050222, end: 20071101
  2. NUVARING [Suspect]
     Indication: CONTRACEPTION
     Dates: start: 20071201, end: 20080805
  3. RISPERIDONE [Concomitant]
  4. ZOLOFT [Concomitant]

REACTIONS (1)
  - DEEP VEIN THROMBOSIS [None]
